FAERS Safety Report 5812456-8 (Version None)
Quarter: 2008Q3

REPORT INFORMATION
  Report Type: 
  Country: None (occurrence: None)
  Receive Date: 20080716
  Receipt Date: 20080716
  Transmission Date: 20090109
  Serious: No
  Sender: FDA-Public Use
  Company Number: None

PATIENT
  Sex: Male

DRUGS (1)
  1. ERYTHROMYCIN + BENZOYL PEROXIDE TOP GEL  NDC 0781-7054-59 [Suspect]
     Dates: start: 20080712

REACTIONS (1)
  - MEDICATION ERROR [None]
